FAERS Safety Report 8823811 (Version 1)
Quarter: 2012Q4

REPORT INFORMATION
  Report Type: 
  Country: US (occurrence: US)
  Receive Date: 20121003
  Receipt Date: 20121003
  Transmission Date: 20130627
  Serious: Yes (Other)
  Sender: FDA-Public Use
  Company Number: US-PFIZER INC-2012241282

PATIENT
  Age: 50 Year
  Sex: Female
  Weight: 68.93 kg

DRUGS (11)
  1. CHANTIX [Suspect]
     Indication: SMOKING CESSATION THERAPY
     Dosage: 0.5 mg, 1x/day
     Route: 048
     Dates: start: 20120616, end: 2012
  2. CHANTIX [Suspect]
     Dosage: 0.5 mg, 1x/day
     Route: 048
     Dates: start: 201209, end: 201209
  3. CHANTIX [Suspect]
     Dosage: 1 mg, 2x/day
     Route: 048
     Dates: start: 201209
  4. CYMBALTA [Concomitant]
     Dosage: 90 mg, 1x/day
     Route: 048
  5. PROPRANOLOL [Concomitant]
     Indication: HEADACHE
     Dosage: 40 mg, 2x/day
     Route: 048
  6. PROPRANOLOL [Concomitant]
     Indication: INTRACRANIAL ANEURYSM
  7. INDOMETHACIN [Concomitant]
     Indication: HEADACHE
     Dosage: 75 mg, as needed
  8. INDOMETHACIN [Concomitant]
     Indication: INTRACRANIAL ANEURYSM
  9. CLONAZEPAM [Concomitant]
     Dosage: 0.5 mg, as needed
     Route: 048
  10. TOPIRAMATE [Concomitant]
     Indication: HEADACHE
     Dosage: 100 mg, 2x/day
     Route: 048
  11. TOPIRAMATE [Concomitant]
     Indication: INTRACRANIAL ANEURYSM

REACTIONS (3)
  - Pneumothorax [Unknown]
  - Nervousness [Unknown]
  - Nausea [Not Recovered/Not Resolved]
